FAERS Safety Report 7427645-9 (Version None)
Quarter: 2011Q2

REPORT INFORMATION
  Report Type: 
  Country: None (occurrence: None)
  Receive Date: 20110408
  Receipt Date: 20110331
  Transmission Date: 20111010
  Serious: Yes (Hospitalization)
  Sender: FDA-Public Use
  Company Number: 2011MA003362

PATIENT
  Sex: Male

DRUGS (3)
  1. DOXAZOSIN MESYLATE TABLETS, 8 MG (BASE) (PUREPAC) (DOXAZOSIN MESYLATE) [Suspect]
  2. ATENOLOL [Suspect]
  3. HYDROCHLOROTHIAZIDE [Suspect]

REACTIONS (2)
  - BRADYCARDIA [None]
  - HYPOTENSION [None]
